FAERS Safety Report 12073971 (Version 1)
Quarter: 2016Q1

REPORT INFORMATION
  Report Type: Spontaneous
  Country: US (occurrence: US)
  Receive Date: 20160212
  Receipt Date: 20160212
  Transmission Date: 20160526
  Serious: Yes (Other)
  Sender: FDA-Public Use
  Company Number: US-HOSPIRA-3150798

PATIENT
  Age: 3 Year
  Sex: Female
  Weight: 14 kg

DRUGS (35)
  1. CYTARABINE. [Suspect]
     Active Substance: CYTARABINE
     Indication: CHEMOTHERAPY
     Dosage: ONCE
     Route: 037
     Dates: start: 20160113, end: 20160113
  2. GENTAMICIN. [Concomitant]
     Active Substance: GENTAMICIN
     Indication: PROPHYLAXIS
     Dosage: EVERY 24 HOURS
     Route: 042
     Dates: start: 20160112, end: 20160114
  3. DEXAMETHASONE. [Concomitant]
     Active Substance: DEXAMETHASONE
     Indication: BRAIN OEDEMA
     Dosage: EVERY 6 HOURS
     Route: 042
     Dates: start: 20160109, end: 20160109
  4. DEXAMETHASONE. [Concomitant]
     Active Substance: DEXAMETHASONE
     Indication: BRAIN OEDEMA
     Dosage: EVERY 8 HOURS
     Route: 042
     Dates: start: 20160111, end: 20160111
  5. HYDROCORTISONE. [Suspect]
     Active Substance: HYDROCORTISONE
     Indication: CHEMOTHERAPY
     Dosage: ONCE
     Route: 037
     Dates: start: 20160106, end: 20160106
  6. DIPHENHYDRAMINE. [Concomitant]
     Active Substance: DIPHENHYDRAMINE
     Indication: NAUSEA
     Route: 042
     Dates: start: 20160101
  7. GADOBUTROL [Concomitant]
     Active Substance: GADOBUTROL
     Indication: NUCLEAR MAGNETIC RESONANCE IMAGING
     Dosage: 0.05 ML/KG, ONCE IN RADIOLOGY
     Route: 042
     Dates: start: 20160113, end: 20160113
  8. CYTARABINE. [Suspect]
     Active Substance: CYTARABINE
     Indication: CHEMOTHERAPY
     Dosage: ONCE
     Route: 037
     Dates: start: 20160106, end: 20160106
  9. MORPHINE [Concomitant]
     Active Substance: MORPHINE
     Indication: PAIN
     Dosage: EVERY 3 HOURS PRN
     Route: 042
     Dates: start: 20151231, end: 20160102
  10. LINEZOLID. [Concomitant]
     Active Substance: LINEZOLID
     Indication: PROPHYLAXIS
     Dosage: EVERY 8 HOURS
     Route: 042
     Dates: start: 20160112, end: 20160114
  11. CYTARABINE. [Suspect]
     Active Substance: CYTARABINE
     Indication: ACUTE MYELOID LEUKAEMIA
     Dosage: EVERY 12 HOURS
     Route: 042
     Dates: start: 20160108, end: 20160109
  12. SODIUM CHLORIDE. [Concomitant]
     Active Substance: SODIUM CHLORIDE
     Indication: DEHYDRATION
     Dosage: 20 ML/KG, ONCE
     Route: 040
     Dates: start: 20160108, end: 20160108
  13. LORAZEPAM. [Concomitant]
     Active Substance: LORAZEPAM
     Indication: NAUSEA
     Dosage: ONCE PRN
     Route: 042
     Dates: start: 20160106, end: 20160106
  14. DEXAMETHASONE. [Concomitant]
     Active Substance: DEXAMETHASONE
     Indication: BRAIN OEDEMA
     Dosage: EVERY 6 HOURS
     Route: 042
     Dates: start: 20160110, end: 20160111
  15. METHOTREXATE [Suspect]
     Active Substance: METHOTREXATE
     Indication: CHEMOTHERAPY
     Dosage: ONCE
     Route: 037
     Dates: start: 20160106, end: 20160106
  16. COTRIMOXAZOLE [Concomitant]
     Active Substance: SULFAMETHOXAZOLE\TRIMETHOPRIM
     Indication: PROPHYLAXIS
     Dosage: 2 TIMES PER DAY ON MON AND TUES
     Route: 048
     Dates: start: 20160104, end: 20160105
  17. CEFEPIME [Concomitant]
     Active Substance: CEFEPIME HYDROCHLORIDE
     Indication: PROPHYLAXIS
     Dosage: EVERY 8 HOURS
     Route: 042
     Dates: start: 20160112, end: 20160114
  18. DEXAMETHASONE. [Concomitant]
     Active Substance: DEXAMETHASONE
     Indication: BRAIN OEDEMA
     Dosage: EVERY 6 HOURS
     Route: 042
     Dates: start: 20151231, end: 20160108
  19. DEXAMETHASONE. [Concomitant]
     Active Substance: DEXAMETHASONE
     Indication: BRAIN OEDEMA
     Dosage: EVERY 6 HOURS
     Route: 042
     Dates: start: 20160110, end: 20160112
  20. IMMUNE GLOBULIN [Concomitant]
     Active Substance: HUMAN IMMUNOGLOBULIN G
     Indication: HYPOGAMMAGLOBULINAEMIA
     Dosage: ONCE
     Route: 042
     Dates: start: 20160113, end: 20160113
  21. ONDANSETRON [Concomitant]
     Active Substance: ONDANSETRON
     Indication: NAUSEA
     Dosage: EVERY 8 HOURS
     Route: 042
     Dates: start: 20160101
  22. CYTARABINE. [Suspect]
     Active Substance: CYTARABINE
     Indication: CHEMOTHERAPY
     Dosage: ONCE
     Route: 037
     Dates: start: 20160113, end: 20160113
  23. RANITIDINE [Concomitant]
     Active Substance: RANITIDINE\RANITIDINE HYDROCHLORIDE
     Indication: HYPERSENSITIVITY
     Dosage: EVERY 8 HOURS
     Route: 042
     Dates: start: 20151230
  24. LORAZEPAM. [Concomitant]
     Active Substance: LORAZEPAM
     Indication: NAUSEA
     Dosage: EVERY 6 HOURS PRN
     Route: 042
     Dates: start: 20160101
  25. DEXTROSE. [Concomitant]
     Active Substance: DEXTROSE
     Indication: PRODUCT USED FOR UNKNOWN INDICATION
     Dosage: CONTINUOUS
     Route: 042
     Dates: start: 20151230, end: 20160105
  26. DEXAMETHASONE. [Concomitant]
     Active Substance: DEXAMETHASONE
     Indication: BRAIN OEDEMA
     Dosage: EVERY 6 HOURS
     Route: 042
     Dates: start: 20160110, end: 20160110
  27. COTRIMOXAZOLE [Concomitant]
     Active Substance: SULFAMETHOXAZOLE\TRIMETHOPRIM
     Indication: PROPHYLAXIS
     Dosage: 2 TIMES PER DAY ON MON AND TUES
     Dates: start: 20160111, end: 20160112
  28. LACTATED RINGERS [Concomitant]
     Active Substance: CALCIUM CHLORIDE\POTASSIUM CHLORIDE\SODIUM CHLORIDE\SODIUM LACTATE
     Indication: DEHYDRATION
     Dosage: CONTINUOUS
     Route: 042
     Dates: start: 20160113, end: 20160113
  29. ACETAMINOPHEN. [Concomitant]
     Active Substance: ACETAMINOPHEN
     Indication: PAIN
     Dosage: ONCE
     Route: 048
     Dates: start: 20160110, end: 20160110
  30. ASPARAGINASE ERWINIA CHRYSANTHEMI [Suspect]
     Active Substance: ASPARAGINASE ERWINIA CHRYSANTHEMI
     Indication: CHEMOTHERAPY
     Dosage: 25,000 UNITS/M2, ONCE
     Route: 042
     Dates: start: 20160103, end: 20160103
  31. ASPARAGINASE ERWINIA CHRYSANTHEMI [Suspect]
     Active Substance: ASPARAGINASE ERWINIA CHRYSANTHEMI
     Indication: CHEMOTHERAPY
     Dosage: 25,000 UNITS/M2, ONCE
     Route: 042
     Dates: start: 20160109, end: 20160109
  32. DIPHENHYDRAMINE. [Concomitant]
     Active Substance: DIPHENHYDRAMINE
     Indication: HYPERSENSITIVITY
     Dosage: ONCE
     Route: 042
     Dates: start: 20160110, end: 20160110
  33. FLUCONAZOLE. [Concomitant]
     Active Substance: FLUCONAZOLE
     Indication: PROPHYLAXIS
     Route: 048
     Dates: start: 20160110
  34. DOCUSATE [Concomitant]
     Active Substance: DOCUSATE
     Indication: CONSTIPATION
     Dosage: 20 MG/24 HRS, EVERY 12 HOURS
     Route: 048
     Dates: start: 20160103, end: 20160108
  35. COTRIMOXAZOLE [Concomitant]
     Active Substance: SULFAMETHOXAZOLE\TRIMETHOPRIM
     Indication: PROPHYLAXIS
     Dosage: ONCE
     Route: 048
     Dates: start: 20160113, end: 20160113

REACTIONS (1)
  - Conjunctivitis [Recovered/Resolved]

NARRATIVE: CASE EVENT DATE: 20160113
